FAERS Safety Report 6966186-X (Version None)
Quarter: 2010Q3

REPORT INFORMATION
  Report Type: 
  Country: None (occurrence: None)
  Receive Date: 20100903
  Receipt Date: 20100830
  Transmission Date: 20110219
  Serious: Yes (Hospitalization)
  Sender: FDA-Public Use
  Company Number: PHHO2010FR13120

PATIENT
  Sex: Female
  Weight: 71 kg

DRUGS (7)
  1. AFINITOR [Suspect]
     Indication: BREAST CANCER METASTATIC
     Dosage: UNK
     Route: 048
     Dates: start: 20100504
  2. BLINDED NO TREATMENT RECEIVED NOMED [Suspect]
     Indication: BREAST CANCER METASTATIC
     Dosage: UNK
     Route: 048
     Dates: start: 20100504
  3. BLINDED PLACEBO COMP-PLA+ [Suspect]
     Indication: BREAST CANCER METASTATIC
     Dosage: UNK
     Route: 048
     Dates: start: 20100504
  4. COMPARATOR VINORELBINE [Suspect]
     Dosage: UNK
     Dates: start: 20100504, end: 20100719
  5. COMPARATOR VINORELBINE [Suspect]
     Dosage: UNK
     Dates: start: 20100803
  6. COMPARATOR TRASTUZUMAB [Suspect]
  7. GLUCOPHAGE [Concomitant]

REACTIONS (1)
  - ESCHERICHIA SEPSIS [None]
